FAERS Safety Report 14603639 (Version 4)
Quarter: 2018Q2

REPORT INFORMATION
  Report Type: Spontaneous
  Country: IT (occurrence: IT)
  Receive Date: 20180306
  Receipt Date: 20180423
  Transmission Date: 20180711
  Serious: Yes (Other)
  Sender: FDA-Public Use
  Company Number: IT-B.I. PHARMACEUTICALS,INC./RIDGEFIELD-2018-12-000821

PATIENT
  Age: 63 Year
  Sex: Female

DRUGS (1)
  1. SYNJARDY [Suspect]
     Active Substance: EMPAGLIFLOZIN\METFORMIN HYDROCHLORIDE
     Indication: TYPE 2 DIABETES MELLITUS
     Dosage: STRENGTH:  5MG/1000MG
     Route: 048
     Dates: start: 20170803, end: 20180221

REACTIONS (3)
  - Cough [Not Recovered/Not Resolved]
  - Vaginal infection [Not Recovered/Not Resolved]
  - Bronchopneumopathy [Not Recovered/Not Resolved]

NARRATIVE: CASE EVENT DATE: 20170830
